FAERS Safety Report 7454691-1 (Version None)
Quarter: 2011Q2

REPORT INFORMATION
  Report Type: 
  Country: None (occurrence: None)
  Receive Date: 20110503
  Receipt Date: 20100602
  Transmission Date: 20111010
  Serious: Yes (Other)
  Sender: FDA-Public Use
  Company Number: US-PFIZER INC-2009193580

PATIENT
  Sex: Female
  Weight: 99.773 kg

DRUGS (4)
  1. VASOTEC [Concomitant]
     Indication: HYPERTENSION
  2. MEDROXYPROGESTERONE ACETATE [Suspect]
     Indication: MENOPAUSE
     Dosage: 10 MG, UNK
     Dates: start: 19921201, end: 19960801
  3. PREMARIN [Suspect]
     Indication: MENOPAUSE
     Dosage: 0.625 MG, UNK
     Dates: start: 19921201, end: 19960801
  4. PREMPRO [Suspect]
     Indication: MENOPAUSE
     Dosage: 0.625/2.5MG
     Dates: start: 19960901, end: 20000801

REACTIONS (1)
  - BREAST CANCER [None]
